FAERS Safety Report 4716023-9 (Version None)
Quarter: 2005Q3

REPORT INFORMATION
  Report Type: 
  Country: None (occurrence: None)
  Receive Date: 20050718
  Receipt Date: 20050603
  Transmission Date: 20060218
  Serious: Yes (Hospitalization)
  Sender: FDA-Public Use
  Company Number: US-MERCK-0506USA00927

PATIENT
  Age: 52 Year
  Sex: Male
  Weight: 90 kg

DRUGS (22)
  1. VIOXX [Suspect]
     Indication: ARTHRITIS
     Route: 048
     Dates: start: 19990924, end: 20000101
  2. VIOXX [Suspect]
     Route: 048
     Dates: start: 20000101, end: 20000901
  3. VIOXX [Suspect]
     Route: 048
     Dates: start: 20000901, end: 20010101
  4. VIOXX [Suspect]
     Route: 048
     Dates: start: 20020801, end: 20030901
  5. VIOXX [Suspect]
     Route: 048
     Dates: start: 20020801, end: 20030901
  6. VIOXX [Suspect]
     Route: 048
     Dates: start: 20030901
  7. VIOXX [Suspect]
     Indication: BACK PAIN
     Route: 048
     Dates: start: 19990924, end: 20000101
  8. VIOXX [Suspect]
     Route: 048
     Dates: start: 20000101, end: 20000901
  9. VIOXX [Suspect]
     Route: 048
     Dates: start: 20000901, end: 20010101
  10. VIOXX [Suspect]
     Route: 048
     Dates: start: 20020801, end: 20030901
  11. VIOXX [Suspect]
     Route: 048
     Dates: start: 20020801, end: 20030901
  12. VIOXX [Suspect]
     Route: 048
     Dates: start: 20030901
  13. VICODIN [Concomitant]
     Route: 065
  14. ATIVAN [Concomitant]
     Indication: ANXIETY
     Route: 065
  15. VITAMIN E [Concomitant]
     Route: 065
  16. VITAMINS (UNSPECIFIED) [Concomitant]
     Route: 065
  17. ZANTAC [Concomitant]
     Indication: DYSPEPSIA
     Route: 065
  18. TYLENOL [Concomitant]
     Route: 065
  19. TYLENOL [Concomitant]
     Route: 065
  20. ADVIL [Concomitant]
     Route: 065
  21. ZOCOR [Concomitant]
     Indication: HYPERCHOLESTEROLAEMIA
     Route: 048
  22. GLUCOSAMINE [Concomitant]
     Route: 065

REACTIONS (5)
  - CORONARY ARTERY DISEASE [None]
  - EMOTIONAL DISTRESS [None]
  - MYOCARDIAL INFARCTION [None]
  - RECTAL HAEMORRHAGE [None]
  - ROTATOR CUFF SYNDROME [None]
